FAERS Safety Report 5365842-7 (Version None)
Quarter: 2007Q2

REPORT INFORMATION
  Report Type: 
  Country: None (occurrence: None)
  Receive Date: 20070621
  Receipt Date: 20070607
  Transmission Date: 20071010
  Serious: Yes (Hospitalization)
  Sender: FDA-Public Use
  Company Number: RU-SHR-RU-2007-013203

PATIENT
  Age: 31 Year
  Sex: Male

DRUGS (2)
  1. BETASERON [Suspect]
     Indication: RELAPSING-REMITTING MULTIPLE SCLEROSIS
     Dosage: 8 OR 16 MIU, EVERY 2D
     Route: 058
     Dates: start: 20050613, end: 20070413
  2. BETASERON [Suspect]
     Dosage: UNK, EVERY 2D
     Route: 058
     Dates: start: 20070415

REACTIONS (1)
  - RHEUMATIC FEVER [None]
